FAERS Safety Report 5689941-5 (Version None)
Quarter: 2008Q1

REPORT INFORMATION
  Report Type: 
  Country: None (occurrence: None)
  Receive Date: 20080331
  Receipt Date: 20080331
  Transmission Date: 20080703
  Serious: Yes (Hospitalization)
  Sender: FDA-Public Use
  Company Number: None

PATIENT
  Sex: Female
  Weight: 98.2 kg

DRUGS (5)
  1. CISPLATIN [Suspect]
     Dosage: 100 MG
  2. DOXORUBICIN HYDROCHLORIDE [Suspect]
     Dosage: 90 MG
  3. TAXOL [Suspect]
     Dosage: 315 MG
  4. DIOVAN [Concomitant]
  5. LOPRESSOR [Concomitant]

REACTIONS (3)
  - ABDOMINAL PAIN [None]
  - NAUSEA [None]
  - NEUTROPENIA [None]
